FAERS Safety Report 14394398 (Version 1)
Quarter: 2018Q1

REPORT INFORMATION
  Report Type: Spontaneous
  Country: US (occurrence: US)
  Receive Date: 20180116
  Receipt Date: 20180116
  Transmission Date: 20180509
  Serious: No
  Sender: FDA-Public Use
  Company Number: US-REGENERON PHARMACEUTICALS, INC.-2017-26808

PATIENT

DRUGS (7)
  1. VERAPAMIL [Concomitant]
     Active Substance: VERAPAMIL HYDROCHLORIDE
     Indication: HYPERTENSION
  2. ZYTIGA [Suspect]
     Active Substance: ABIRATERONE ACETATE
     Indication: PROSTATE CANCER
     Dosage: UNK
     Dates: start: 2017
  3. LUPRON [Concomitant]
     Active Substance: LEUPROLIDE ACETATE
     Indication: PROSTATE CANCER
     Dosage: EVERY 3 MONTHS
  4. EYLEA [Suspect]
     Active Substance: AFLIBERCEPT
     Indication: NEOVASCULAR AGE-RELATED MACULAR DEGENERATION
     Dosage: UNK, OD EVERY 4-5 WEEKS
     Dates: start: 2017, end: 2017
  5. EYLEA [Suspect]
     Active Substance: AFLIBERCEPT
     Dosage: UNK, EVERY 8 WEEKS, OD
     Dates: start: 2017
  6. EYLEA [Suspect]
     Active Substance: AFLIBERCEPT
     Dosage: UNK, DATE OF LAST DOSE
     Dates: start: 201710, end: 201710
  7. PREDNISONE. [Suspect]
     Active Substance: PREDNISONE
     Indication: PROSTATE CANCER
     Dosage: UNK
     Dates: start: 201708

REACTIONS (1)
  - Eye pain [Unknown]

NARRATIVE: CASE EVENT DATE: 201708
